FAERS Safety Report 5626904-X (Version None)
Quarter: 2008Q1

REPORT INFORMATION
  Report Type: 
  Country: None (occurrence: None)
  Receive Date: 20080212
  Receipt Date: 20080204
  Transmission Date: 20080703
  Serious: Yes (Life-Threatening, Hospitalization, Other)
  Sender: FDA-Public Use
  Company Number: GXKR2008GB01378

PATIENT
  Age: 69 Year
  Sex: Female

DRUGS (3)
  1. WARFARIN SODIUM [Suspect]
     Dosage: 4.14 MG, ORAL; 3.58, ORAL
     Route: 048
  2. SITAXSENTAN(SITAXENTAN) [Suspect]
     Dosage: 100 MG, QD, ORAL
     Route: 048
     Dates: start: 20080110
  3. ALENDRONATE SODIUM [Concomitant]

REACTIONS (3)
  - DRUG INTERACTION [None]
  - HAEMORRHAGE [None]
  - INTERNATIONAL NORMALISED RATIO INCREASED [None]
